FAERS Safety Report 20693936 (Version 2)
Quarter: 2022Q2

REPORT INFORMATION
  Report Type: Report from Study
  Country: DE (occurrence: DE)
  Receive Date: 20220411
  Receipt Date: 20220413
  Transmission Date: 20220721
  Serious: Yes (Other)
  Sender: FDA-Public Use
  Company Number: DE-LEO Pharma-342010

PATIENT
  Age: 31 Year
  Sex: Female
  Weight: 104 kg

DRUGS (1)
  1. BRODALUMAB [Suspect]
     Active Substance: BRODALUMAB
     Indication: Psoriasis
     Dosage: NO KYNTHEUM POSOLOGY
     Route: 058
     Dates: start: 20220311

REACTIONS (2)
  - Erysipelas [Not Recovered/Not Resolved]
  - Skin erosion [Not Recovered/Not Resolved]

NARRATIVE: CASE EVENT DATE: 20220311
